FAERS Safety Report 15851364 (Version 2)
Quarter: 2019Q1

REPORT INFORMATION
  Report Type: Spontaneous
  Country: US (occurrence: US)
  Receive Date: 20190122
  Receipt Date: 20190319
  Transmission Date: 20190417
  Serious: Yes (Other)
  Sender: FDA-Public Use
  Company Number: US-BRISTOL-MYERS SQUIBB COMPANY-BMS-2019-004202

PATIENT
  Age: 63 Year
  Sex: Male

DRUGS (1)
  1. OPDIVO [Suspect]
     Active Substance: NIVOLUMAB
     Indication: TRANSITIONAL CELL CARCINOMA
     Dosage: UNK UNK, Q4WK
     Route: 065
     Dates: start: 20171030

REACTIONS (4)
  - Rheumatoid arthritis [Unknown]
  - Retinal artery occlusion [Unknown]
  - Retinal haemorrhage [Unknown]
  - Arteritis [Unknown]

NARRATIVE: CASE EVENT DATE: 20190206
